FAERS Safety Report 7222492-5 (Version None)
Quarter: 2011Q1

REPORT INFORMATION
  Report Type: 
  Country: None (occurrence: None)
  Receive Date: 20110112
  Receipt Date: 20110104
  Transmission Date: 20110831
  Serious: Yes (Other)
  Sender: FDA-Public Use
  Company Number: GB-PFIZER INC-2011002274

PATIENT
  Age: 44 Year
  Sex: Female
  Weight: 96 kg

DRUGS (10)
  1. NAPROXEN [Concomitant]
  2. OXYNORM [Concomitant]
  3. ESTRADIOL [Concomitant]
  4. PARACETAMOL [Concomitant]
  5. AMITRIPTYLINE [Concomitant]
  6. DOMPERIDONE [Concomitant]
  7. SOLIFENACIN [Concomitant]
  8. PREGABALIN [Suspect]
     Indication: NEURALGIA
     Dosage: 150 MG, 2X/DAY
     Route: 048
     Dates: start: 20100719
  9. OXYCODONE [Concomitant]
  10. SERTRALINE [Concomitant]

REACTIONS (1)
  - ELECTROCARDIOGRAM QT PROLONGED [None]
